FAERS Safety Report 6355933-6 (Version None)
Quarter: 2009Q3

REPORT INFORMATION
  Report Type: 
  Country: None (occurrence: None)
  Receive Date: 20090911
  Receipt Date: 20090911
  Transmission Date: 20100115
  Serious: No
  Sender: FDA-Public Use
  Company Number: None

PATIENT
  Age: 52 Year
  Sex: Male
  Weight: 95.2554 kg

DRUGS (2)
  1. METHYLPREDNISOLONE 4MG TAB [Suspect]
     Indication: EXPOSURE TO TOXIC AGENT
     Dosage: BREAKFAST/LUNCH/DINNER + BEDTIME DAILY 21 TABLETS
  2. PREDNISONE TAB [Suspect]
     Indication: EXPOSURE TO TOXIC AGENT
     Dosage: BREAKFAST/LUNCH/DINNER + BEDTIME DAILY 48 TABLETS

REACTIONS (2)
  - GASTROOESOPHAGEAL REFLUX DISEASE [None]
  - HICCUPS [None]
